FAERS Safety Report 6073335-7 (Version None)
Quarter: 2009Q1

REPORT INFORMATION
  Report Type: 
  Country: None (occurrence: None)
  Receive Date: 20090211
  Receipt Date: 20090203
  Transmission Date: 20090719
  Serious: Yes (Hospitalization, Other)
  Sender: FDA-Public Use
  Company Number: PHHY2009JP03114

PATIENT
  Age: 78 Year
  Sex: Female

DRUGS (6)
  1. COMTAN [Suspect]
     Indication: PARKINSON'S DISEASE
     Dosage: 3 TABLETS DAILY
     Route: 048
     Dates: start: 20081226, end: 20090126
  2. PRAMIPEXOLE DIHYDROCHLORIDE [Suspect]
     Indication: PARKINSON'S DISEASE
     Dosage: 1 MG, TID
     Route: 048
     Dates: start: 20040820, end: 20090126
  3. CARBIDOPA + LEVODOPA [Suspect]
     Indication: PARKINSON'S DISEASE
     Dosage: 100 MG, TID
     Route: 048
     Dates: start: 20040406, end: 20090126
  4. KARY UNI [Concomitant]
  5. XALATAN [Concomitant]
  6. CARTEOLOL HYDROCHLORIDE [Concomitant]

REACTIONS (13)
  - ACIDOSIS [None]
  - ALANINE AMINOTRANSFERASE INCREASED [None]
  - ALTERED STATE OF CONSCIOUSNESS [None]
  - ASPARTATE AMINOTRANSFERASE INCREASED [None]
  - BLOOD CREATINE PHOSPHOKINASE INCREASED [None]
  - BLOOD CREATININE INCREASED [None]
  - BLOOD LACTATE DEHYDROGENASE INCREASED [None]
  - BLOOD UREA INCREASED [None]
  - DISSEMINATED INTRAVASCULAR COAGULATION [None]
  - HYPERKALAEMIA [None]
  - INFECTION [None]
  - LIVER DISORDER [None]
  - RENAL FAILURE [None]
